FAERS Safety Report 16519145 (Version 1)
Quarter: 2019Q3

REPORT INFORMATION
  Report Type: Spontaneous
  Country: US (occurrence: US)
  Receive Date: 20190702
  Receipt Date: 20190702
  Transmission Date: 20191004
  Serious: No
  Sender: FDA-Public Use
  Company Number: US-GALDERMA-US18038273

PATIENT
  Age: 21 Year
  Sex: Female

DRUGS (3)
  1. CETAPHIL GENTLE SKIN CLEANSER [Suspect]
     Active Substance: COSMETICS
     Indication: PRODUCT USED FOR UNKNOWN INDICATION
     Route: 061
  2. DIFFERIN GEL [Suspect]
     Active Substance: ADAPALENE
     Indication: ACNE
     Dosage: 0.1%
     Route: 061
     Dates: start: 20180909
  3. CETAPHIL [Suspect]
     Active Substance: AVOBENZONE\OCTOCRYLENE\TRICLOSAN
     Indication: PRODUCT USED FOR UNKNOWN INDICATION
     Route: 061

REACTIONS (6)
  - Erythema [Unknown]
  - Dry skin [Unknown]
  - Skin exfoliation [Unknown]
  - Pruritus [Unknown]
  - Skin swelling [Unknown]
  - Pain of skin [Unknown]

NARRATIVE: CASE EVENT DATE: 20180910
